FAERS Safety Report 20665432 (Version 1)
Quarter: 2022Q2

REPORT INFORMATION
  Report Type: Spontaneous
  Country: US (occurrence: US)
  Receive Date: 20220402
  Receipt Date: 20220402
  Transmission Date: 20220721
  Serious: Yes (Other)
  Sender: FDA-Public Use
  Company Number: None

PATIENT
  Age: 69 Year
  Sex: Male

DRUGS (1)
  1. LENALIDOMIDE [Suspect]
     Active Substance: LENALIDOMIDE
     Indication: Product used for unknown indication
     Route: 048
     Dates: start: 201903

REACTIONS (6)
  - Gastrointestinal disorder [Unknown]
  - Urinary incontinence [Unknown]
  - Headache [Unknown]
  - Haematoma [Unknown]
  - Retinal pallor [Unknown]
  - Adverse event [Unknown]
